FAERS Safety Report 9325297 (Version 2)
Quarter: 2013Q3

REPORT INFORMATION
  Report Type: Report from Study
  Country: AU (occurrence: AU)
  Receive Date: 20130604
  Receipt Date: 20130722
  Transmission Date: 20140515
  Serious: Yes (Other)
  Sender: FDA-Public Use
  Company Number: AU-ROCHE-1230949

PATIENT
  Age: 42 Year
  Sex: Male

DRUGS (5)
  1. AVASTIN [Suspect]
     Indication: PRODUCT USED FOR UNKNOWN INDICATION
     Route: 065
     Dates: end: 201212
  2. FLUOROURACIL [Concomitant]
     Route: 065
     Dates: end: 201212
  3. FOLINIC ACID [Concomitant]
     Route: 065
     Dates: end: 201212
  4. CETUXIMAB [Concomitant]
     Route: 065
     Dates: start: 201212
  5. IRINOTECAN [Concomitant]
     Route: 065
     Dates: end: 201212

REACTIONS (1)
  - Large intestinal obstruction [Unknown]
